FAERS Safety Report 12332876 (Version 1)
Quarter: 2016Q2

REPORT INFORMATION
  Report Type: Spontaneous
  Country: US (occurrence: US)
  Receive Date: 20160504
  Receipt Date: 20160504
  Transmission Date: 20160815
  Serious: No
  Sender: FDA-Public Use
  Company Number: US-ROCHE-ITM201502IM010337

PATIENT
  Sex: Male
  Weight: 83.99 kg

DRUGS (3)
  1. ESBRIET [Suspect]
     Active Substance: PIRFENIDONE
     Route: 048
     Dates: start: 20141229
  2. ASPIRIN. [Concomitant]
     Active Substance: ASPIRIN
  3. ESBRIET [Suspect]
     Active Substance: PIRFENIDONE
     Indication: IDIOPATHIC PULMONARY FIBROSIS
     Route: 048
     Dates: start: 20150102

REACTIONS (5)
  - Decreased appetite [Unknown]
  - Weight decreased [Unknown]
  - Faeces discoloured [Unknown]
  - Diarrhoea [Unknown]
  - Fatigue [Unknown]
